FAERS Safety Report 9666308 (Version 2)
Quarter: 2013Q4

REPORT INFORMATION
  Report Type: Spontaneous
  Country: AU (occurrence: AU)
  Receive Date: 20131104
  Receipt Date: 20131104
  Transmission Date: 20140711
  Serious: Yes (Other)
  Sender: FDA-Public Use
  Company Number: AU-NOVOPROD-380972

PATIENT
  Sex: Female
  Weight: 56 kg

DRUGS (8)
  1. LEVEMIR [Suspect]
     Indication: TYPE 1 DIABETES MELLITUS
     Dosage: 8 - 14U DAILY
     Route: 058
     Dates: start: 20121016
  2. LEVEMIR [Suspect]
     Dosage: 6-10 UNITS AT NIGHT
     Route: 058
  3. LEVEMIR [Suspect]
     Dosage: 2-6 U IN MORNING
     Route: 058
  4. LEVEMIR [Suspect]
     Dosage: UNK
     Route: 058
  5. HUMALOG [Concomitant]
     Indication: TYPE 1 DIABETES MELLITUS
     Dosage: START DATE UNKNOWN YEARS PRIOR TO PREGNANCY
     Route: 058
  6. THYROXINE [Concomitant]
     Indication: HYPOTHYROIDISM
     Dosage: 200-250 UG PER DAY START DATE YEARS AGO
     Route: 048
  7. OSTELIN VITAMIN D [Concomitant]
     Indication: VITAMIN D DEFICIENCY
     Dosage: 1000 U, 3 X DAILY START DATE YEARS AGO
  8. FERROGRAD C [Concomitant]
     Indication: IRON DEFICIENCY
     Dosage: DAILY DOSE START DATE PRIOR TO PREGNANCY
     Dates: end: 20130817

REACTIONS (4)
  - Preterm premature rupture of membranes [Unknown]
  - Hyperglycaemia [Recovered/Resolved]
  - Hypoglycaemia [Recovered/Resolved]
  - Exposure during pregnancy [Unknown]
